FAERS Safety Report 5133023-8 (Version None)
Quarter: 2006Q4

REPORT INFORMATION
  Report Type: 
  Country: None (occurrence: None)
  Receive Date: 20061023
  Receipt Date: 20061020
  Transmission Date: 20070319
  Serious: Yes (Other)
  Sender: FDA-Public Use
  Company Number: CN-BRISTOL-MYERS SQUIBB COMPANY-13547807

PATIENT
  Sex: Female

DRUGS (1)
  1. NYSTAN VAG CR 100,000U [Suspect]
     Indication: VAGINAL INFECTION
     Dates: start: 20061010, end: 20061020

REACTIONS (1)
  - PREGNANCY [None]
